FAERS Safety Report 8493862 (Version 2)
Quarter: 2015Q2

REPORT INFORMATION
  Report Type: Spontaneous
  Country: US (occurrence: US)
  Receive Date: 20120404
  Receipt Date: 20150519
  Transmission Date: 20150821
  Serious: Yes (Hospitalization, Other)
  Sender: FDA-Public Use
  Company Number: US-ASTRAZENECA-2011SE71079

PATIENT
  Age: 62 Year
  Sex: Female
  Weight: 83 kg

DRUGS (7)
  1. CRESTOR [Suspect]
     Active Substance: ROSUVASTATIN CALCIUM
     Indication: HIGH DENSITY LIPOPROTEIN DECREASED
     Route: 048
     Dates: end: 20150509
  2. CRESTOR [Suspect]
     Active Substance: ROSUVASTATIN CALCIUM
     Indication: BLOOD CHOLESTEROL ABNORMAL
     Route: 048
     Dates: end: 20150509
  3. LEVOTHYROXINE [Concomitant]
     Active Substance: LEVOTHYROXINE
     Indication: THYROID DISORDER
     Route: 048
  4. CALCIUM AND VITAMIN D3 [Concomitant]
     Active Substance: CALCIUM\CHOLECALCIFEROL
     Indication: VITAMIN SUPPLEMENTATION
     Route: 048
  5. CRESTOR [Suspect]
     Active Substance: ROSUVASTATIN CALCIUM
     Indication: BLOOD CHOLESTEROL ABNORMAL
     Route: 048
  6. CRESTOR [Suspect]
     Active Substance: ROSUVASTATIN CALCIUM
     Indication: HIGH DENSITY LIPOPROTEIN DECREASED
     Route: 048
  7. CELEBREX [Concomitant]
     Active Substance: CELECOXIB
     Indication: JOINT SWELLING
     Route: 048

REACTIONS (16)
  - Malignant melanoma [Unknown]
  - Incorrect dose administered [Unknown]
  - Limb injury [Unknown]
  - Arthritis [Unknown]
  - Drug dose omission [Unknown]
  - Breast cancer [Unknown]
  - Thyroid cancer [Unknown]
  - Nerve injury [Unknown]
  - Malaise [Unknown]
  - Hypoaesthesia [Unknown]
  - Memory impairment [Unknown]
  - Impaired driving ability [Unknown]
  - Gait disturbance [Unknown]
  - Stress [Unknown]
  - Irritability [Unknown]
  - Fatigue [Unknown]

NARRATIVE: CASE EVENT DATE: 2013
